FAERS Safety Report 24806875 (Version 1)
Quarter: 2025Q1

REPORT INFORMATION
  Report Type: Report from Study
  Country: IT (occurrence: IT)
  Receive Date: 20250104
  Receipt Date: 20250104
  Transmission Date: 20250408
  Serious: Yes (Other)
  Sender: ACCORD
  Company Number: None

PATIENT
  Age: 60 Year
  Sex: Male

DRUGS (3)
  1. FLUOROURACIL [Suspect]
     Active Substance: FLUOROURACIL
     Indication: Laryngeal squamous cell carcinoma
     Dates: start: 20240603, end: 20240603
  2. CISPLATIN [Suspect]
     Active Substance: CISPLATIN
     Indication: Laryngeal squamous cell carcinoma
     Dates: start: 20240603, end: 20240603
  3. PEMBROLIZUMAB [Suspect]
     Active Substance: PEMBROLIZUMAB
     Indication: Laryngeal squamous cell carcinoma
     Dates: start: 20240603, end: 20240603

REACTIONS (2)
  - Azotaemia [Recovering/Resolving]
  - Blood thyroid stimulating hormone increased [Not Recovered/Not Resolved]

NARRATIVE: CASE EVENT DATE: 20240620
